FAERS Safety Report 5459106-0 (Version None)
Quarter: 2007Q3

REPORT INFORMATION
  Report Type: 
  Country: None (occurrence: None)
  Receive Date: 20070919
  Receipt Date: 20070910
  Transmission Date: 20080115
  Serious: Yes (Hospitalization)
  Sender: FDA-Public Use
  Company Number: JP-GENENTECH-200225

PATIENT

DRUGS (5)
  1. RITUXAN [Suspect]
     Indication: NON-HODGKIN'S LYMPHOMA
     Dosage: 488 MG, SINGLE
     Route: 042
     Dates: start: 20011015, end: 20011015
  2. CARBOPLATIN [Suspect]
     Indication: NON-HODGKIN'S LYMPHOMA
     Dosage: 95 MG, QD
     Route: 042
     Dates: start: 20011016, end: 20011019
  3. CYTARABINE [Suspect]
     Indication: NON-HODGKIN'S LYMPHOMA
     Dosage: 252 MG, QD
     Route: 042
     Dates: start: 20011016, end: 20011019
  4. ETOPOSIDE [Suspect]
     Indication: NON-HODGKIN'S LYMPHOMA
     Dosage: 95 MG, QD
     Route: 042
     Dates: start: 20011016, end: 20011019
  5. MITOXANTRONE HCL [Suspect]
     Indication: NON-HODGKIN'S LYMPHOMA
     Dosage: 10 MG, QD
     Route: 042
     Dates: start: 20011016, end: 20011019

REACTIONS (1)
  - HEPATITIS B [None]
